FAERS Safety Report 21842633 (Version 3)
Quarter: 2023Q1

REPORT INFORMATION
  Report Type: Spontaneous
  Country: US (occurrence: US)
  Receive Date: 20230110
  Receipt Date: 20230228
  Transmission Date: 20230417
  Serious: No
  Sender: FDA-Public Use
  Company Number: US-SA-SAC20230106001097

PATIENT
  Age: 29 Year
  Sex: Male

DRUGS (1)
  1. DUPIXENT [Suspect]
     Active Substance: DUPILUMAB
     Dosage: 300 MG, OTHER
     Route: 058
     Dates: start: 202211

REACTIONS (2)
  - Rash pruritic [Unknown]
  - Rash erythematous [Unknown]

NARRATIVE: CASE EVENT DATE: 20230109
